FAERS Safety Report 19603179 (Version 3)
Quarter: 2021Q4

REPORT INFORMATION
  Report Type: Spontaneous
  Country: JP (occurrence: JP)
  Receive Date: 20210723
  Receipt Date: 20211014
  Transmission Date: 20220303
  Serious: Yes (Hospitalization, Other)
  Sender: FDA-Public Use
  Company Number: JP-OTSUKA-2021_025215

PATIENT
  Age: 9 Decade
  Sex: Male

DRUGS (11)
  1. SAMSCA [Suspect]
     Active Substance: TOLVAPTAN
     Indication: Cardiac failure
     Dosage: 11.25MG/DAY, UNK
     Route: 048
  2. SAMSCA [Suspect]
     Active Substance: TOLVAPTAN
     Dosage: 7.5MG/DAY, UNK
     Route: 048
  3. SAMSCA [Suspect]
     Active Substance: TOLVAPTAN
     Dosage: 3.75MG/DAY, UNK
     Route: 048
  4. SAMSCA [Suspect]
     Active Substance: TOLVAPTAN
     Dosage: 3.75MG/DAY, UNK
     Route: 048
  5. SPIRONOLACTONE [Suspect]
     Active Substance: SPIRONOLACTONE
     Indication: Cardiac failure
     Dosage: 50, UNK
     Route: 048
  6. SPIRONOLACTONE [Suspect]
     Active Substance: SPIRONOLACTONE
     Dosage: 25, UNK
     Route: 048
  7. FUROSEMIDE [Suspect]
     Active Substance: FUROSEMIDE
     Indication: Cardiac failure
     Dosage: 20, UNK
     Route: 048
  8. VALSARTAN [Suspect]
     Active Substance: VALSARTAN
     Indication: Cardiac failure
     Dosage: 40 MG, QD
     Route: 048
  9. VALSARTAN [Suspect]
     Active Substance: VALSARTAN
     Dosage: 40 MG, BID
     Route: 048
  10. VALSARTAN [Suspect]
     Active Substance: VALSARTAN
     Dosage: 80 MG, BID
     Route: 048
  11. BISOPROLOL FUMARATE [Concomitant]
     Active Substance: BISOPROLOL FUMARATE
     Indication: Product used for unknown indication
     Dosage: UNK
     Route: 048

REACTIONS (12)
  - Atrial fibrillation [Unknown]
  - Cardiac failure chronic [Unknown]
  - Hypervolaemia [Unknown]
  - Hypotension [Recovered/Resolved]
  - Blood pressure increased [Unknown]
  - Weight decreased [Unknown]
  - Syncope [Recovered/Resolved]
  - Hypovolaemia [Recovering/Resolving]
  - Blood creatinine increased [Unknown]
  - Blood potassium increased [Unknown]
  - Prescribed underdose [Unknown]
  - Treatment noncompliance [Unknown]

NARRATIVE: CASE EVENT DATE: 20210123
